FAERS Safety Report 18786744 (Version 1)
Quarter: 2021Q1

REPORT INFORMATION
  Report Type: Spontaneous
  Country: US (occurrence: US)
  Receive Date: 20210126
  Receipt Date: 20210126
  Transmission Date: 20210419
  Serious: No
  Sender: FDA-Public Use
  Company Number: US-DRREDDYS-USA/USA/20/0130703

PATIENT
  Sex: Female

DRUGS (1)
  1. HABITROL [Suspect]
     Active Substance: NICOTINE
     Indication: PRODUCT USED FOR UNKNOWN INDICATION
     Dosage: STARTED 4 DAYS AGO
     Route: 062
     Dates: start: 202012

REACTIONS (4)
  - Product adhesion issue [Unknown]
  - Diarrhoea [Unknown]
  - Nightmare [Unknown]
  - Feeling abnormal [Unknown]
